FAERS Safety Report 5053158-8 (Version None)
Quarter: 2006Q3

REPORT INFORMATION
  Report Type: 
  Country: None (occurrence: None)
  Receive Date: 20060712
  Receipt Date: 20060623
  Transmission Date: 20061208
  Serious: Yes (Other)
  Sender: FDA-Public Use
  Company Number: US200606005317

PATIENT
  Age: 32 Year
  Sex: Male

DRUGS (3)
  1. STRATTERA [Suspect]
     Indication: ATTENTION DEFICIT/HYPERACTIVITY DISORDER
     Dosage: SEE IMAGE
     Dates: start: 20060617, end: 20060623
  2. LITHIUM (LITHIUM) [Concomitant]
  3. SEROQUEL [Concomitant]

REACTIONS (3)
  - CONVULSION [None]
  - SYNCOPE [None]
  - TREMOR [None]
